FAERS Safety Report 7610049-3 (Version None)
Quarter: 2011Q3

REPORT INFORMATION
  Report Type: 
  Country: None (occurrence: None)
  Receive Date: 20110715
  Receipt Date: 20110707
  Transmission Date: 20111222
  Serious: Yes (Other)
  Sender: FDA-Public Use
  Company Number: US-ASTRAZENECA-2011SE40597

PATIENT
  Age: 60 Year
  Sex: Female
  Weight: 52.2 kg

DRUGS (1)
  1. SEROQUEL [Suspect]
     Route: 048
     Dates: end: 20110301

REACTIONS (5)
  - NERVE COMPRESSION [None]
  - PROLAPSE REPAIR [None]
  - INTERVERTEBRAL DISC PROTRUSION [None]
  - INTERVERTEBRAL DISC DISORDER [None]
  - MUSCULOSKELETAL STIFFNESS [None]
